FAERS Safety Report 18035050 (Version 1)
Quarter: 2020Q3

REPORT INFORMATION
  Report Type: Spontaneous
  Country: US (occurrence: US)
  Receive Date: 20200716
  Receipt Date: 20200716
  Transmission Date: 20201103
  Serious: No
  Sender: FDA-Public Use
  Company Number: None

PATIENT
  Age: 70 Year
  Sex: Male
  Weight: 71 kg

DRUGS (2)
  1. VANCOMYCIN (VANCOMYCIN HCL 1GM/VIL INJ) [Suspect]
     Active Substance: VANCOMYCIN HYDROCHLORIDE
     Indication: ARTERIOVENOUS GRAFT SITE INFECTION
     Route: 042
     Dates: start: 20191219, end: 20200115
  2. CEFEPIME (CEFEPIME HCL 1GM/BAG INJ) [Suspect]
     Active Substance: CEFEPIME HYDROCHLORIDE
     Indication: ARTERIOVENOUS GRAFT SITE INFECTION
     Route: 042
     Dates: start: 20191219, end: 20200108

REACTIONS (9)
  - Pruritus [None]
  - Urticaria [None]
  - Eosinophilia [None]
  - Diarrhoea [None]
  - Rash [None]
  - Pyrexia [None]
  - Nausea [None]
  - Erythema multiforme [None]
  - Vomiting [None]

NARRATIVE: CASE EVENT DATE: 20200114
